FAERS Safety Report 8848093 (Version 3)
Quarter: 2012Q4

REPORT INFORMATION
  Report Type: 
  Country: US (occurrence: US)
  Receive Date: 20121018
  Receipt Date: 20121210
  Transmission Date: 20130627
  Serious: No
  Sender: FDA-Public Use
  Company Number: US-VERTEX PHARMACEUTICAL INC.-2012-022145

PATIENT
  Age: 54 None
  Sex: Female
  Weight: 89 kg

DRUGS (12)
  1. INCIVEK [Suspect]
     Indication: HEPATITIS C
     Dosage: 750 mg, tid
     Route: 048
     Dates: start: 20120928
  2. RIBAVIRIN [Suspect]
     Indication: HEPATITIS C
     Dosage: 600 mg, bid
     Route: 048
     Dates: start: 20120928
  3. PEGASYS [Suspect]
     Indication: HEPATITIS C
     Dosage: 180 ?g, QW
     Route: 058
     Dates: start: 20120928
  4. LISINOPRIL [Concomitant]
     Indication: HYPERTENSION
     Dosage: 10/20 mg
     Route: 048
  5. GABAPENTIN [Concomitant]
     Indication: NEURALGIA
     Dosage: 300 mg, bid
     Route: 048
  6. METFORMIN [Concomitant]
     Indication: DIABETES MELLITUS
     Dosage: 1000 mg, bid
     Route: 048
  7. ASPIRIN [Concomitant]
     Indication: ANTICOAGULANT THERAPY
     Dosage: 81 mg, qd
     Route: 048
  8. LANTUS [Concomitant]
     Indication: DIABETES MELLITUS
     Dosage: 40 ut, qd
     Route: 048
  9. NAPROXEN [Concomitant]
     Dosage: UNK UNK, prn
  10. VITAMIN B12                        /00056201/ [Concomitant]
  11. CENTRUM                            /02217401/ [Concomitant]
  12. VITAMIN D /00107901/ [Concomitant]
     Dosage: 2000 ut, qd

REACTIONS (8)
  - Inappropriate schedule of drug administration [Unknown]
  - Drug dose omission [Recovered/Resolved]
  - Injection site pain [Unknown]
  - Injection site bruising [Unknown]
  - Diarrhoea [Not Recovered/Not Resolved]
  - Anorectal discomfort [Not Recovered/Not Resolved]
  - Haematochezia [Not Recovered/Not Resolved]
  - Pruritus [Not Recovered/Not Resolved]
